FAERS Safety Report 6567780-0 (Version None)
Quarter: 2010Q1

REPORT INFORMATION
  Report Type: 
  Country: None (occurrence: None)
  Receive Date: 20100203
  Receipt Date: 20100125
  Transmission Date: 20100710
  Serious: Yes (Hospitalization)
  Sender: FDA-Public Use
  Company Number: AT-ASTRAZENECA-2010SE03796

PATIENT
  Age: 38 Year
  Sex: Female

DRUGS (6)
  1. SEROQUEL [Suspect]
     Route: 048
     Dates: start: 20090501, end: 20090606
  2. SEROQUEL [Suspect]
     Route: 048
     Dates: start: 20090607, end: 20090611
  3. SEROQUEL [Suspect]
     Route: 048
     Dates: start: 20090612
  4. DEPAKENE [Suspect]
     Dates: start: 20080101
  5. LEPONEX [Suspect]
     Dates: start: 20090501
  6. LEVOTHYROXINE SODIUM [Concomitant]
     Dates: start: 20080101

REACTIONS (1)
  - HAEMORRHAGIC STROKE [None]
